FAERS Safety Report 18337786 (Version 1)
Quarter: 2020Q4

REPORT INFORMATION
  Report Type: Spontaneous
  Country: BR (occurrence: BR)
  Receive Date: 20201002
  Receipt Date: 20201002
  Transmission Date: 20210113
  Serious: Yes (Death, Other)
  Sender: FDA-Public Use
  Company Number: BR-BAYER-2018-190315

PATIENT
  Sex: Female

DRUGS (2)
  1. STIVARGA [Suspect]
     Active Substance: REGORAFENIB
     Indication: METASTASES TO LIVER
     Dosage: 3 DF, QD
  2. STIVARGA [Suspect]
     Active Substance: REGORAFENIB
     Indication: COLON CANCER
     Dosage: 4 DF, QD
     Dates: start: 20180825

REACTIONS (10)
  - Death [Fatal]
  - Hypertension [None]
  - Hypoaesthesia [Recovering/Resolving]
  - Rectal haemorrhage [Recovered/Resolved]
  - Headache [Recovering/Resolving]
  - Pain in extremity [Recovering/Resolving]
  - Abdominal pain upper [Recovering/Resolving]
  - Gait disturbance [None]
  - Scab [Recovering/Resolving]
  - Palmoplantar keratoderma [None]

NARRATIVE: CASE EVENT DATE: 201808
